FAERS Safety Report 9730918 (Version 1)
Quarter: 2013Q4

REPORT INFORMATION
  Report Type: Spontaneous
  Country: ES (occurrence: ES)
  Receive Date: 20131205
  Receipt Date: 20131205
  Transmission Date: 20140711
  Serious: Yes (Life-Threatening, Other)
  Sender: FDA-Public Use
  Company Number: ES-B.I. PHARMACEUTICALS,INC./RIDGEFIELD-2013-BI-40083ES

PATIENT
  Age: 76 Year
  Sex: Male

DRUGS (5)
  1. PRADAXA [Suspect]
     Indication: TRANSIENT ISCHAEMIC ATTACK
     Dosage: 300 MG
     Route: 048
     Dates: start: 201302, end: 201306
  2. PARACETAMOL CINFA [Concomitant]
     Dosage: 1000 MG
     Route: 048
     Dates: start: 20130404
  3. GEMFIBROZILO STADA [Concomitant]
     Dosage: 900 MG
     Route: 048
     Dates: start: 2007
  4. HIDROSALURETIL [Concomitant]
     Dates: start: 2007
  5. LOVIBON [Concomitant]
     Dosage: 5 MG
     Dates: start: 2007

REACTIONS (7)
  - Renal failure acute [Recovered/Resolved]
  - Asthenia [Unknown]
  - Malaise [Unknown]
  - Weight decreased [Unknown]
  - Decreased appetite [Unknown]
  - Oedema peripheral [Unknown]
  - Fatigue [Unknown]
